FAERS Safety Report 5929974-4 (Version None)
Quarter: 2008Q4

REPORT INFORMATION
  Report Type: 
  Country: None (occurrence: None)
  Receive Date: 20081024
  Receipt Date: 20081013
  Transmission Date: 20090506
  Serious: Yes (Other)
  Sender: FDA-Public Use
  Company Number: US-PFIZER INC-2008078493

PATIENT
  Sex: Male
  Weight: 72.6 kg

DRUGS (4)
  1. LIPITOR [Suspect]
     Indication: BLOOD CHOLESTEROL INCREASED
  2. LOPID [Suspect]
     Indication: BLOOD CHOLESTEROL INCREASED
  3. GLYBURIDE [Concomitant]
     Indication: DIABETES MELLITUS
  4. ATENOLOL [Concomitant]
     Indication: HYPERTENSION

REACTIONS (10)
  - ABASIA [None]
  - ACCIDENT [None]
  - AMNESIA [None]
  - FALL [None]
  - ILL-DEFINED DISORDER [None]
  - INSOMNIA [None]
  - MUSCLE DISORDER [None]
  - MUSCLE SPASMS [None]
  - MYALGIA [None]
  - UNEVALUABLE EVENT [None]
